FAERS Safety Report 5108422-0 (Version None)
Quarter: 2006Q3

REPORT INFORMATION
  Report Type: 
  Country: None (occurrence: None)
  Receive Date: 20060731
  Receipt Date: 20060605
  Transmission Date: 20061208
  Serious: No
  Sender: FDA-Public Use
  Company Number: 2006PV015250

PATIENT
  Age: 49 Year
  Sex: Female
  Weight: 127.0072 kg

DRUGS (9)
  1. BYETTA [Suspect]
     Indication: DIABETES MELLITUS NON-INSULIN-DEPENDENT
     Dosage: SEE IMAGE
     Route: 058
     Dates: start: 20050801, end: 20050801
  2. BYETTA [Suspect]
     Indication: DIABETES MELLITUS NON-INSULIN-DEPENDENT
     Dosage: SEE IMAGE
     Route: 058
     Dates: start: 20060301, end: 20060101
  3. BYETTA [Suspect]
     Indication: DIABETES MELLITUS NON-INSULIN-DEPENDENT
     Dosage: SEE IMAGE
     Route: 058
     Dates: start: 20060101
  4. GLUCOVANCE [Concomitant]
  5. ACTOS [Concomitant]
  6. LEVOTHYROXINE SODIUM [Concomitant]
  7. CARDIZEM [Concomitant]
  8. DIGOXIN [Concomitant]
  9. LOPRESSOR [Concomitant]

REACTIONS (4)
  - BLOOD GLUCOSE INCREASED [None]
  - FEELING ABNORMAL [None]
  - HEART RATE INCREASED [None]
  - INJECTION SITE PAIN [None]
